FAERS Safety Report 23696815 (Version 1)
Quarter: 2024Q2

REPORT INFORMATION
  Report Type: Spontaneous
  Country: US (occurrence: None)
  Receive Date: 20240401
  Receipt Date: 20240401
  Transmission Date: 20240715
  Serious: Yes (Other)
  Sender: FDA-Public Use
  Company Number: None

PATIENT
  Age: 60 Year
  Sex: Female
  Weight: 72.45 kg

DRUGS (1)
  1. MOUNJARO [Suspect]
     Active Substance: TIRZEPATIDE
     Indication: Diabetes mellitus
     Dosage: WEEKLY SUBCUTNEOUS
     Route: 058
     Dates: start: 20240201, end: 20240315

REACTIONS (2)
  - Alopecia [None]
  - Product use complaint [None]

NARRATIVE: CASE EVENT DATE: 20240201
